FAERS Safety Report 5963034-1 (Version None)
Quarter: 2008Q4

REPORT INFORMATION
  Report Type: 
  Country: None (occurrence: None)
  Receive Date: 20081120
  Receipt Date: 20081111
  Transmission Date: 20090506
  Serious: Yes (Life-Threatening)
  Sender: FDA-Public Use
  Company Number: 2008AP003075

PATIENT
  Age: 49 Year
  Sex: Male

DRUGS (4)
  1. SERTRALINE HYDROCHLORIDE [Suspect]
     Dosage: 50 MG, PO, QID
     Route: 048
     Dates: start: 20081010
  2. LANSOPRAZOLE [Concomitant]
  3. OLANZAPINE [Concomitant]
  4. ZOPICLONE (ZOPICLONE) [Concomitant]

REACTIONS (4)
  - BASE EXCESS INCREASED [None]
  - BLOOD PRESSURE INCREASED [None]
  - HEART RATE INCREASED [None]
  - PANCREATITIS HAEMORRHAGIC [None]
